FAERS Safety Report 9753726 (Version 3)
Quarter: 2014Q1

REPORT INFORMATION
  Report Type: Spontaneous
  Country: US (occurrence: US)
  Receive Date: 20131213
  Receipt Date: 20140116
  Transmission Date: 20141002
  Serious: Yes (Hospitalization, Other)
  Sender: FDA-Public Use
  Company Number: US-SANTEN INC.-INC-13-000312

PATIENT
  Sex: Female

DRUGS (5)
  1. BETIMOL [Suspect]
     Indication: INTRAOCULAR PRESSURE INCREASED
     Route: 061
  2. ATENOLOL [Concomitant]
  3. TYLENOL [Concomitant]
  4. TRAVATAN [Concomitant]
  5. ALPHAGAN [Concomitant]

REACTIONS (3)
  - Fall [Recovered/Resolved]
  - Blood pressure increased [Recovered/Resolved]
  - Headache [Recovered/Resolved]
